FAERS Safety Report 15370859 (Version 1)
Quarter: 2018Q3

REPORT INFORMATION
  Report Type: Spontaneous
  Country: US (occurrence: US)
  Receive Date: 20180905
  Receipt Date: 20180905
  Transmission Date: 20181010
  Serious: Yes (Other)
  Sender: FDA-Public Use
  Company Number: None

PATIENT
  Age: 45 Year
  Sex: Male
  Weight: 66.7 kg

DRUGS (9)
  1. LORAZEPAM 0.5MG BID [Concomitant]
  2. LACTULOSE. [Concomitant]
     Active Substance: LACTULOSE
  3. LITHIUM 200MG DAILY [Concomitant]
  4. CLOZAPINE. [Suspect]
     Active Substance: CLOZAPINE
     Indication: PSYCHOTIC DISORDER
     Route: 048
  5. TUOJEO [Concomitant]
  6. LISINOPRIL. [Concomitant]
     Active Substance: LISINOPRIL
  7. MONTELUKAST 10MG DAILY [Concomitant]
  8. APIDRA INSULIN [Concomitant]
  9. ATORVASTATIN 20MG [Concomitant]
     Active Substance: ATORVASTATIN

REACTIONS (1)
  - Tachycardia [None]

NARRATIVE: CASE EVENT DATE: 20180131
